FAERS Safety Report 10761234 (Version 1)
Quarter: 2015Q1

REPORT INFORMATION
  Report Type: Spontaneous
  Country: US (occurrence: None)
  Receive Date: 20150203
  Receipt Date: 20150203
  Transmission Date: 20150721
  Serious: Yes (Hospitalization)
  Sender: FDA-Public Use
  Company Number: None

PATIENT
  Age: 59 Year
  Sex: Female
  Weight: 69.7 kg

DRUGS (1)
  1. VELCADE [Suspect]
     Active Substance: BORTEZOMIB
     Dosage: 0 MG?
     Dates: end: 20141109

REACTIONS (5)
  - Malignant neoplasm progression [None]
  - Hypercalcaemia [None]
  - Plasma cell leukaemia [None]
  - Hypercalcaemia of malignancy [None]
  - Renal impairment [None]

NARRATIVE: CASE EVENT DATE: 20150123
